FAERS Safety Report 15989822 (Version 1)
Quarter: 2019Q1

REPORT INFORMATION
  Report Type: Spontaneous
  Country: US (occurrence: US)
  Receive Date: 20190221
  Receipt Date: 20190221
  Transmission Date: 20190418
  Serious: Yes (Death)
  Sender: FDA-Public Use
  Company Number: None

PATIENT
  Sex: Female

DRUGS (7)
  1. IBRANCE [Suspect]
     Active Substance: PALBOCICLIB
     Indication: BONE CANCER
     Dosage: ?          OTHER FREQUENCY:DAILY FOR 21 DAYS;?
     Route: 048
     Dates: start: 20161201
  2. BISACODYL, CALCIUM/D, DEBROX [Concomitant]
  3. LANTUS, LOVENOX [Concomitant]
  4. MULTI VITAMIN, OXYCODONE [Concomitant]
  5. ENALAPRIL, ENEMA, HUMALOG [Concomitant]
  6. MILK OF MAGN, ZOFRAN [Concomitant]
  7. PROTONIX, TYLENOL [Concomitant]

REACTIONS (1)
  - Death [None]
